FAERS Safety Report 7001456-0 (Version None)
Quarter: 2010Q3

REPORT INFORMATION
  Report Type: 
  Country: None (occurrence: None)
  Receive Date: 20100920
  Receipt Date: 20091116
  Transmission Date: 20110219
  Serious: No
  Sender: FDA-Public Use
  Company Number: US-ASTRAZENECA-2009SE27165

PATIENT
  Sex: Female
  Weight: 58.5 kg

DRUGS (2)
  1. SEROQUEL XR [Suspect]
     Route: 048
  2. LITHIUM [Concomitant]

REACTIONS (1)
  - HAIR COLOUR CHANGES [None]
